FAERS Safety Report 20160329 (Version 4)
Quarter: 2022Q1

REPORT INFORMATION
  Report Type: Report from Study
  Country: DE (occurrence: None)
  Receive Date: 20211208
  Receipt Date: 20220221
  Transmission Date: 20220423
  Serious: Yes (Hospitalization)
  Sender: FDA-Public Use
  Company Number: DE-ROCHE-2971921

PATIENT
  Age: 24 Year
  Sex: Female
  Weight: 85 kg

DRUGS (21)
  1. OCRELIZUMAB [Suspect]
     Active Substance: OCRELIZUMAB
     Indication: Relapsing-remitting multiple sclerosis
     Dosage: DATE OF MOST RECENT DOSE OF OCRELIZUMAB PRIOR TO THIS EVENT ONSET: 23/AUG/2021
     Route: 042
     Dates: start: 20190329
  2. METHYLPREDNISOLONE [Suspect]
     Active Substance: METHYLPREDNISOLONE
     Indication: Premedication
     Dosage: SUBSEQUENT DOSES ON 12/APR/2019, 27/SEP/2019, 19/MAR/2020,03/SEP/2020, 04/DEB/2-21, 23/AUG/2021
     Route: 042
     Dates: start: 20190329
  3. ACETAMINOPHEN [Concomitant]
     Active Substance: ACETAMINOPHEN
     Indication: Premedication
     Dosage: SUBSEQUENT DOSES ON 12/APR/2019, 27/SEP/2019, 19/MAR/2020, 03/SEP/2020,04/FEB/2021,23/AUG/2021,
     Route: 048
     Dates: start: 20190329
  4. COMIRNATY [Concomitant]
     Active Substance: TOZINAMERAN
     Route: 030
     Dates: start: 20210417, end: 20210417
  5. COMIRNATY [Concomitant]
     Active Substance: TOZINAMERAN
     Route: 030
     Dates: start: 20210529, end: 20210529
  6. COTRIM [Concomitant]
     Active Substance: SULFAMETHOXAZOLE\TRIMETHOPRIM
     Indication: Urinary tract infection
     Route: 048
     Dates: start: 20191003, end: 20191003
  7. SULFAMETHOXAZOLE\TRIMETHOPRIM [Concomitant]
     Active Substance: SULFAMETHOXAZOLE\TRIMETHOPRIM
     Indication: Urinary tract infection
     Route: 048
     Dates: start: 20191107, end: 20191113
  8. SULFAMETHOXAZOLE\TRIMETHOPRIM [Concomitant]
     Active Substance: SULFAMETHOXAZOLE\TRIMETHOPRIM
     Indication: Subacute endocarditis
     Route: 048
     Dates: start: 20211126
  9. SULFAMETHOXAZOLE\TRIMETHOPRIM [Concomitant]
     Active Substance: SULFAMETHOXAZOLE\TRIMETHOPRIM
     Route: 048
     Dates: start: 20211107
  10. IBUPROFEN [Concomitant]
     Active Substance: IBUPROFEN
     Indication: Nasopharyngitis
     Route: 048
     Dates: start: 20191003, end: 20191011
  11. IBUPROFEN [Concomitant]
     Active Substance: IBUPROFEN
     Indication: Infusion related reaction
     Route: 048
     Dates: start: 20200903, end: 20200903
  12. LEVONORGESTREL [Concomitant]
     Active Substance: LEVONORGESTREL
     Route: 050
     Dates: start: 20190408
  13. METOCLOPRAMIDE [Concomitant]
     Active Substance: METOCLOPRAMIDE
     Indication: Nausea
     Route: 048
     Dates: start: 20210628, end: 20210630
  14. PANTOPRAZOLE SODIUM [Concomitant]
     Active Substance: PANTOPRAZOLE SODIUM
     Route: 048
     Dates: start: 20211126
  15. PREDNISOLONE [Concomitant]
     Active Substance: PREDNISOLONE
     Indication: Vestibular neuronitis
     Route: 048
     Dates: start: 20190508, end: 20190509
  16. PREDNISOLONE [Concomitant]
     Active Substance: PREDNISOLONE
     Route: 048
     Dates: start: 20190510, end: 20190514
  17. PREDNISOLONE [Concomitant]
     Active Substance: PREDNISOLONE
     Route: 048
     Dates: start: 20190515, end: 20190516
  18. PREDNISOLONE [Concomitant]
     Active Substance: PREDNISOLONE
     Route: 048
     Dates: start: 20211126
  19. RIZATRIPTAN [Concomitant]
     Active Substance: RIZATRIPTAN
     Indication: Migraine
     Route: 048
     Dates: start: 20210714
  20. CETIRIZINE HYDROCHLORIDE [Concomitant]
     Active Substance: CETIRIZINE HYDROCHLORIDE
     Indication: Premedication
     Dosage: SUBSEQUENT DOSES ON 12/APR/2019, 27/SEP/2019, 19/MAR/2020, 03/SEP/2020,04/FEB/2021,23/AUG/2021,
     Route: 048
     Dates: start: 20190329, end: 20190329
  21. ENOXAPARIN [Concomitant]
     Active Substance: ENOXAPARIN
     Route: 058
     Dates: start: 20211126

REACTIONS (1)
  - Subacute endocarditis [Recovered/Resolved]

NARRATIVE: CASE EVENT DATE: 20211126
